FAERS Safety Report 7517262-4 (Version None)
Quarter: 2011Q2

REPORT INFORMATION
  Report Type: 
  Country: None (occurrence: None)
  Receive Date: 20110601
  Receipt Date: 20110525
  Transmission Date: 20111010
  Serious: Yes (Hospitalization, Other)
  Sender: FDA-Public Use
  Company Number: US-ELI_LILLY_AND_COMPANY-US200906005700

PATIENT
  Sex: Male
  Weight: 75.283 kg

DRUGS (1)
  1. BYETTA [Suspect]
     Dosage: UNK, UNK
     Dates: start: 20060919, end: 20061103

REACTIONS (5)
  - PANCREATIC CARCINOMA NON-RESECTABLE [None]
  - RENAL INJURY [None]
  - HEPATIC CIRRHOSIS [None]
  - PANCREATITIS [None]
  - PANCREATITIS CHRONIC [None]
